FAERS Safety Report 19211475 (Version 4)
Quarter: 2023Q1

REPORT INFORMATION
  Report Type: Report from Study
  Country: IT (occurrence: IT)
  Receive Date: 20210504
  Receipt Date: 20230214
  Transmission Date: 20230418
  Serious: Yes (Other)
  Sender: FDA-Public Use
  Company Number: NVSC2021IT097434

PATIENT
  Age: 72 Year
  Sex: Female
  Weight: 53 kg

DRUGS (5)
  1. TAFINLAR [Suspect]
     Active Substance: DABRAFENIB MESYLATE
     Indication: Ovarian cancer
     Dosage: 300 MG
     Route: 048
     Dates: start: 20210326, end: 20210418
  2. TAFINLAR [Suspect]
     Active Substance: DABRAFENIB MESYLATE
     Dosage: 200 MG, QD
     Route: 048
     Dates: start: 20210430
  3. TRAMETINIB [Suspect]
     Active Substance: TRAMETINIB
     Indication: Ovarian cancer
     Dosage: 2 MG
     Route: 048
     Dates: start: 20210326, end: 20210418
  4. TRAMETINIB [Suspect]
     Active Substance: TRAMETINIB
     Dosage: 1.5 MG, QD
     Route: 048
     Dates: start: 20210430
  5. LEVOFLOXACIN [Concomitant]
     Active Substance: LEVOFLOXACIN
     Indication: Product used for unknown indication
     Dosage: 500 MG, QD (FOR 5 DAYS)
     Route: 065

REACTIONS (2)
  - Febrile neutropenia [Recovered/Resolved]
  - Neutropenia [Recovered/Resolved]

NARRATIVE: CASE EVENT DATE: 20210412
